FAERS Safety Report 11506455 (Version 1)
Quarter: 2015Q3

REPORT INFORMATION
  Report Type: Spontaneous
  Country: US (occurrence: US)
  Receive Date: 20150915
  Receipt Date: 20150915
  Transmission Date: 20151125
  Serious: No
  Sender: FDA-Public Use
  Company Number: US-ROCHE-717896

PATIENT
  Age: 49 Year
  Sex: Male

DRUGS (4)
  1. PEGASYS [Suspect]
     Active Substance: PEGINTERFERON ALFA-2A
     Indication: HEPATITIS C
     Dosage: FORM: PRE FILLED SYRINGE, IN WEEK 48,
     Route: 058
     Dates: start: 20100719, end: 20110613
  2. RIBASPHERE [Suspect]
     Active Substance: RIBAVIRIN
     Indication: HEPATITIS C
     Dosage: DIVIDED DOSES;IN WEEK 48,
     Route: 048
     Dates: start: 20100719, end: 20110613
  3. RESTORIL [Concomitant]
     Active Substance: TEMAZEPAM
     Indication: DEPRESSION
     Route: 065
  4. ZOLOFT [Concomitant]
     Active Substance: SERTRALINE HYDROCHLORIDE
     Indication: DEPRESSION
     Route: 065

REACTIONS (16)
  - Drug dose omission [Unknown]
  - Insomnia [Unknown]
  - Paraesthesia [Not Recovered/Not Resolved]
  - Weight increased [Unknown]
  - Hot flush [Unknown]
  - Hypothyroidism [Unknown]
  - Odynophagia [Unknown]
  - Rash papular [Recovering/Resolving]
  - Dependence [Unknown]
  - Oropharyngeal pain [Unknown]
  - Blood cholesterol increased [Not Recovered/Not Resolved]
  - Drug dose omission [Unknown]
  - Drug abuse [Unknown]
  - Rash pruritic [Not Recovered/Not Resolved]
  - Drug dose omission [Unknown]
  - Viral load increased [Unknown]

NARRATIVE: CASE EVENT DATE: 20100719
